FAERS Safety Report 4666635-6 (Version None)
Quarter: 2005Q2

REPORT INFORMATION
  Report Type: 
  Country: None (occurrence: None)
  Receive Date: 20050519
  Receipt Date: 20050511
  Transmission Date: 20051028
  Serious: Yes (Hospitalization)
  Sender: FDA-Public Use
  Company Number: JP-ABBOTT-05P-087-0300255-00

PATIENT
  Sex: Female
  Weight: 11.5 kg

DRUGS (4)
  1. CEFZON [Suspect]
     Indication: INFLUENZA
     Route: 048
     Dates: start: 20020208, end: 20020208
  2. DIAZEPAM [Suspect]
     Indication: STATUS EPILEPTICUS
     Route: 042
     Dates: start: 20020208, end: 20020208
  3. PARACETAMOL [Suspect]
     Indication: INFLUENZA
     Route: 048
     Dates: start: 20020208, end: 20020208
  4. AMANTADINE HCL [Suspect]
     Indication: INFLUENZA
     Route: 048
     Dates: start: 20020208, end: 20020208

REACTIONS (3)
  - BLOOD GLUCOSE INCREASED [None]
  - CONVULSION [None]
  - VOMITING [None]
